FAERS Safety Report 6926375-7 (Version None)
Quarter: 2010Q3

REPORT INFORMATION
  Report Type: 
  Country: None (occurrence: None)
  Receive Date: 20100816
  Receipt Date: 20100816
  Transmission Date: 20110219
  Serious: Yes (Other)
  Sender: FDA-Public Use
  Company Number: None

PATIENT
  Age: 61 Year
  Sex: Female
  Weight: 77.5651 kg

DRUGS (2)
  1. PHENYTOIN SODIUM [Suspect]
     Indication: CONVULSION
     Dosage: 600MG ONCE IV
     Route: 042
     Dates: start: 20100812, end: 20100812
  2. PHENYTOIN SODIUM [Suspect]
     Indication: PROPHYLAXIS
     Dates: start: 20100812, end: 20100812

REACTIONS (4)
  - BLISTER [None]
  - ERYTHEMA [None]
  - INFUSION RELATED REACTION [None]
  - RASH [None]
